FAERS Safety Report 8764876 (Version 4)
Quarter: 2013Q2

REPORT INFORMATION
  Report Type: Report from Study
  Country: JP (occurrence: JP)
  Receive Date: 20120901
  Receipt Date: 20130410
  Transmission Date: 20140414
  Serious: Yes (Hospitalization, Other)
  Sender: FDA-Public Use
  Company Number: JP-009507513-1208JPN008189

PATIENT
  Age: 64 Year
  Sex: Female
  Weight: 58 kg

DRUGS (14)
  1. PEGINTRON [Suspect]
     Indication: CHRONIC HEPATITIS C
     Dosage: 80 MICROGRAM, QW
     Route: 058
     Dates: start: 20120207, end: 20120530
  2. PEGINTRON [Suspect]
     Dosage: 80 MICROGRAM, QW
     Route: 058
     Dates: start: 20120613, end: 20120724
  3. REBETOL [Suspect]
     Indication: CHRONIC HEPATITIS C
     Dosage: 400 MG, QD
     Route: 048
     Dates: start: 20120207, end: 20120306
  4. REBETOL [Suspect]
     Dosage: 200 MG, QD
     Route: 048
     Dates: start: 20120307, end: 20120501
  5. REBETOL [Suspect]
     Dosage: 400 MG, QD
     Route: 048
     Dates: start: 20120502
  6. REBETOL [Suspect]
     Dosage: 200 MG, QD
     Route: 048
     Dates: start: 20120516, end: 20120530
  7. REBETOL [Suspect]
     Dosage: 600 MG, QD
     Dates: start: 20120613, end: 20120724
  8. TELAVIC [Suspect]
     Indication: CHRONIC HEPATITIS C
     Dosage: 1500 MG, QD
     Route: 048
     Dates: start: 20120207, end: 20120313
  9. TELAVIC [Suspect]
     Dosage: 1000MG, QD
     Route: 048
     Dates: start: 20120314, end: 20120403
  10. TELAVIC [Suspect]
     Dosage: 1500 MG, QD
     Route: 048
     Dates: start: 20120404, end: 20120501
  11. URSO [Concomitant]
     Indication: CHRONIC HEPATITIS C
     Dosage: 600 MG, QD, POR FORMULATION
     Route: 048
     Dates: end: 20120327
  12. CINAL [Concomitant]
     Dosage: 600 MG, QD, FORMULATION POR
     Route: 048
     Dates: end: 20120327
  13. CINAL [Concomitant]
     Dosage: 600 MG, QD, FORMULATION POR
     Route: 048
  14. MICARDIS [Concomitant]
     Indication: HYPERTENSION
     Dosage: 20 MG, QD, FORMULATION POR
     Route: 048
     Dates: end: 20120320

REACTIONS (4)
  - Anaemia [Recovered/Resolved]
  - Sepsis [Recovered/Resolved]
  - Platelet count decreased [Recovered/Resolved]
  - Haemoglobin decreased [Recovered/Resolved]
